FAERS Safety Report 15587519 (Version 1)
Quarter: 2018Q4

REPORT INFORMATION
  Report Type: Spontaneous
  Country: GB (occurrence: GB)
  Receive Date: 20181105
  Receipt Date: 20181105
  Transmission Date: 20190205
  Serious: Yes (Other)
  Sender: FDA-Public Use
  Company Number: GB-SA-2018SA299701

PATIENT
  Age: 36 Year
  Sex: Female
  Weight: 84.4 kg

DRUGS (2)
  1. RIFINAH [Suspect]
     Active Substance: ISONIAZID\RIFAMPIN
     Indication: LATENT TUBERCULOSIS
     Dosage: 300/150 X 2
     Route: 048
     Dates: start: 20180920, end: 20181007
  2. PYRIDOXINE [Concomitant]
     Active Substance: PYRIDOXINE
     Dosage: 10 MG

REACTIONS (5)
  - Dry eye [Recovered/Resolved]
  - Dyspnoea [Recovered/Resolved]
  - Rash [Recovered/Resolved]
  - Eye pruritus [Recovered/Resolved]
  - Pyrexia [Recovered/Resolved]
